FAERS Safety Report 7373139-9 (Version None)
Quarter: 2011Q1

REPORT INFORMATION
  Report Type: 
  Country: None (occurrence: None)
  Receive Date: 20110324
  Receipt Date: 20110321
  Transmission Date: 20110831
  Serious: Yes (Disabling, Other)
  Sender: FDA-Public Use
  Company Number: US-PFIZER INC-2011051562

PATIENT
  Sex: Male
  Weight: 74.83 kg

DRUGS (8)
  1. KLONOPIN [Suspect]
     Indication: POST-TRAUMATIC STRESS DISORDER
  2. KLONOPIN [Suspect]
     Indication: NERVOUSNESS
     Dosage: 1 MG, UNK
     Route: 048
  3. XANAX [Suspect]
     Indication: PANIC ATTACK
     Dosage: 0.1 MG, AS NEEDED
     Route: 048
     Dates: end: 20110201
  4. KLONOPIN [Suspect]
     Indication: ANXIETY
  5. KLONOPIN [Suspect]
     Indication: PANIC ATTACK
  6. PRISTIQ [Suspect]
     Indication: POST-TRAUMATIC STRESS DISORDER
     Dosage: 100 MG, 1X/DAY
     Route: 048
     Dates: start: 20110101
  7. XANAX [Suspect]
     Dosage: UNK
  8. PRISTIQ [Suspect]
     Indication: MAJOR DEPRESSION
     Dosage: 50 MG, 1X/DAY
     Route: 048
     Dates: start: 20101001, end: 20110101

REACTIONS (11)
  - ANGER [None]
  - FEELING ABNORMAL [None]
  - AFFECTIVE DISORDER [None]
  - BLOOD PRESSURE INCREASED [None]
  - ARTHRALGIA [None]
  - PANIC ATTACK [None]
  - WEIGHT DECREASED [None]
  - DEPRESSION [None]
  - ARTHROPATHY [None]
  - MIGRAINE [None]
  - SUICIDAL IDEATION [None]
